FAERS Safety Report 8472616-7 (Version None)
Quarter: 2012Q2

REPORT INFORMATION
  Report Type: 
  Country: None (occurrence: None)
  Receive Date: 20120627
  Receipt Date: 20110926
  Transmission Date: 20120825
  Serious: Yes (Other)
  Sender: FDA-Public Use
  Company Number: US-AMGEN-USASP2011041143

PATIENT
  Age: 80 Year
  Sex: Female

DRUGS (1)
  1. PROCRIT [Suspect]
     Indication: HAEMOGLOBIN DECREASED
     Dosage: UNK
     Dates: start: 20110701

REACTIONS (1)
  - CHEST PAIN [None]
